FAERS Safety Report 11587066 (Version 1)
Quarter: 2015Q3

REPORT INFORMATION
  Report Type: Spontaneous
  Country: US (occurrence: US)
  Receive Date: 20150916
  Receipt Date: 20150916
  Transmission Date: 20151125
  Serious: No
  Sender: FDA-Public Use
  Company Number: US-ELI_LILLY_AND_COMPANY-US200802003664

PATIENT
  Age: 79 Year
  Sex: Female

DRUGS (2)
  1. PLAVIX                                  /SCH/ [Concomitant]
  2. FORTEO [Suspect]
     Active Substance: TERIPARATIDE
     Indication: OSTEOPOROSIS
     Dates: start: 20080209

REACTIONS (4)
  - Dyspnoea [Recovering/Resolving]
  - Injection site bruising [Not Recovered/Not Resolved]
  - Malaise [Recovering/Resolving]
  - Flank pain [Recovering/Resolving]

NARRATIVE: CASE EVENT DATE: 200802
